FAERS Safety Report 19595259 (Version 1)
Quarter: 2021Q3

REPORT INFORMATION
  Report Type: Spontaneous
  Country: US (occurrence: US)
  Receive Date: 20210722
  Receipt Date: 20210722
  Transmission Date: 20211014
  Serious: No
  Sender: FDA-Public Use
  Company Number: US-KYOWAKIRIN-2021BKK012692

PATIENT

DRUGS (2)
  1. NOURIANZ [Suspect]
     Active Substance: ISTRADEFYLLINE
     Indication: PARKINSON^S DISEASE
     Dosage: 20 MG, EVERY MORNING
     Route: 048
     Dates: start: 20210709
  2. NOURIANZ [Suspect]
     Active Substance: ISTRADEFYLLINE
     Dosage: UNK
     Route: 065

REACTIONS (3)
  - Oropharyngeal pain [Unknown]
  - Flushing [Unknown]
  - Pharyngeal swelling [Unknown]

NARRATIVE: CASE EVENT DATE: 20210709
